FAERS Safety Report 21945662 (Version 1)
Quarter: 2023Q1

REPORT INFORMATION
  Report Type: Spontaneous
  Country: US (occurrence: US)
  Receive Date: 20230202
  Receipt Date: 20230202
  Transmission Date: 20230418
  Serious: No
  Sender: FDA-Public Use
  Company Number: US-SA-SAC20230131000255

PATIENT
  Sex: Female

DRUGS (1)
  1. DUPIXENT [Suspect]
     Active Substance: DUPILUMAB
     Dosage: 300 MG, QOW
     Route: 058
     Dates: start: 202201

REACTIONS (7)
  - COVID-19 [Unknown]
  - Headache [Unknown]
  - Pain [Unknown]
  - Decreased appetite [Unknown]
  - Respiratory tract congestion [Unknown]
  - Diarrhoea [Unknown]
  - Chills [Unknown]
